FAERS Safety Report 5451971-6 (Version None)
Quarter: 2007Q3

REPORT INFORMATION
  Report Type: 
  Country: None (occurrence: None)
  Receive Date: 20070912
  Receipt Date: 20070903
  Transmission Date: 20080115
  Serious: Yes (Congenital Anomaly, Other)
  Sender: FDA-Public Use
  Company Number: GXKR2007GB07667

PATIENT
  Sex: Male

DRUGS (2)
  1. LEFLUNOMIDE [Suspect]
     Dosage: TRANSPLACENTAL
     Route: 064
  2. CHOLESTYRAMINE RESIN            (COLESTYRAMINE) [Concomitant]

REACTIONS (6)
  - BLINDNESS UNILATERAL [None]
  - CEREBRAL PALSY [None]
  - DRUG EXPOSURE DURING PREGNANCY [None]
  - MULTIPLE CONGENITAL ABNORMALITIES [None]
  - MUSCLE SPASTICITY [None]
  - PREMATURE BABY [None]
